FAERS Safety Report 22800257 (Version 4)
Quarter: 2025Q1

REPORT INFORMATION
  Report Type: Spontaneous
  Country: US (occurrence: US)
  Receive Date: 20230808
  Receipt Date: 20250206
  Transmission Date: 20250409
  Serious: Yes (Disabling)
  Sender: SANOFI AVENTIS
  Company Number: US-SA-SAC20230807000243

PATIENT
  Age: 61 Year
  Sex: Male

DRUGS (3)
  1. DUPIXENT [Suspect]
     Active Substance: DUPILUMAB
     Indication: Eczema
     Route: 058
     Dates: start: 20230613, end: 20230613
  2. DUPIXENT [Suspect]
     Active Substance: DUPILUMAB
     Indication: Pruritus
     Dosage: 300 MG, QOW
     Route: 058
     Dates: start: 20230628
  3. DUPIXENT [Suspect]
     Active Substance: DUPILUMAB
     Indication: Dermatitis atopic

REACTIONS (18)
  - Loss of personal independence in daily activities [Unknown]
  - Initial insomnia [Unknown]
  - Affective disorder [Unknown]
  - Emotional disorder [Unknown]
  - Peripheral swelling [Recovered/Resolved]
  - Dry skin [Unknown]
  - Tenderness [Not Recovered/Not Resolved]
  - Skin reaction [Unknown]
  - Pain in extremity [Not Recovered/Not Resolved]
  - Pruritus [Unknown]
  - Erythema [Not Recovered/Not Resolved]
  - Drug ineffective for unapproved indication [Unknown]
  - Headache [Unknown]
  - Fall [Unknown]
  - Dizziness [Recovering/Resolving]
  - Eczema [Unknown]
  - Drug ineffective [Unknown]
  - Rash [Unknown]

NARRATIVE: CASE EVENT DATE: 20230101
